FAERS Safety Report 10238605 (Version 2)
Quarter: 2014Q2

REPORT INFORMATION
  Report Type: Spontaneous
  Country: FR (occurrence: FR)
  Receive Date: 20140616
  Receipt Date: 20140616
  Transmission Date: 20141212
  Serious: Yes (Other)
  Sender: FDA-Public Use
  Company Number: FR-SA-2014SA023362

PATIENT
  Age: 31 Year
  Sex: Female
  Weight: 66 kg

DRUGS (2)
  1. LOVENOX [Suspect]
     Indication: HYPERCOAGULATION
     Dosage: STRENGTH 0.7 ML
     Route: 065
     Dates: start: 20130828
  2. FOLIC ACID [Concomitant]

REACTIONS (2)
  - Abortion spontaneous [Unknown]
  - Exposure during pregnancy [Unknown]
